FAERS Safety Report 12799908 (Version 1)
Quarter: 2016Q3

REPORT INFORMATION
  Report Type: Other
  Country: RO (occurrence: RO)
  Receive Date: 20160930
  Receipt Date: 20160930
  Transmission Date: 20161109
  Serious: Yes (Other)
  Sender: FDA-Public Use
  Company Number: RO-ENDO PHARMACEUTICALS INC-2016-005989

PATIENT
  Age: 38 Year
  Sex: Female

DRUGS (1)
  1. AMITRIPTYLINE HCL [Suspect]
     Active Substance: AMITRIPTYLINE
     Indication: PRODUCT USED FOR UNKNOWN INDICATION
     Dosage: 1/4 TABLET
     Route: 048

REACTIONS (1)
  - Anaphylactic shock [Recovered/Resolved]
